FAERS Safety Report 22270458 (Version 1)
Quarter: 2023Q2

REPORT INFORMATION
  Report Type: Spontaneous
  Country: US (occurrence: None)
  Receive Date: 20230429
  Receipt Date: 20230429
  Transmission Date: 20230721
  Serious: Yes (Other)
  Sender: FDA-Public Use
  Company Number: None

PATIENT
  Age: 35 Year
  Sex: Male
  Weight: 112.5 kg

DRUGS (1)
  1. KIRKLAND SIGNATURE QUIT 4 [Suspect]
     Active Substance: NICOTINE
     Indication: Nicotine dependence
     Dosage: OTHER QUANTITY : 380 PIECES;?FREQUENCY : AS NEEDED;?
     Route: 048
     Dates: start: 20230327, end: 20230426

REACTIONS (2)
  - Expired product administered [None]
  - Product dispensing error [None]

NARRATIVE: CASE EVENT DATE: 20230405
